FAERS Safety Report 25094793 (Version 2)
Quarter: 2025Q3

REPORT INFORMATION
  Report Type: Spontaneous
  Country: MX (occurrence: MX)
  Receive Date: 20250319
  Receipt Date: 20250804
  Transmission Date: 20251021
  Serious: Yes (Life-Threatening)
  Sender: ALEXION PHARMACEUTICALS
  Company Number: MX-AstraZeneca-CH-00828476A

PATIENT
  Age: 68 Year
  Sex: Male
  Weight: 80 kg

DRUGS (4)
  1. LOKELMA [Suspect]
     Active Substance: SODIUM ZIRCONIUM CYCLOSILICATE
     Indication: Hyperkalaemia
     Dosage: 10 GRAM, TID
     Dates: start: 20250311, end: 20250314
  2. LOKELMA [Suspect]
     Active Substance: SODIUM ZIRCONIUM CYCLOSILICATE
     Route: 065
  3. TELMISARTAN [Concomitant]
     Active Substance: TELMISARTAN
     Dosage: 50 MILLIGRAM, Q12H
     Route: 065
  4. BICALUTAMIDE [Concomitant]
     Active Substance: BICALUTAMIDE
     Dosage: 50 MILLIGRAM, QD
     Route: 065

REACTIONS (2)
  - Drug ineffective [Not Recovered/Not Resolved]
  - Blood potassium increased [Not Recovered/Not Resolved]

NARRATIVE: CASE EVENT DATE: 20250311
